FAERS Safety Report 6601929-6 (Version None)
Quarter: 2010Q1

REPORT INFORMATION
  Report Type: 
  Country: None (occurrence: None)
  Receive Date: 20100218
  Receipt Date: 20100207
  Transmission Date: 20100710
  Serious: Yes (Other)
  Sender: FDA-Public Use
  Company Number: ES-1180604

PATIENT
  Age: 41 Year
  Sex: Male

DRUGS (4)
  1. CIPRO HC [Suspect]
     Indication: OTITIS MEDIA
     Dosage: AURICULAR (OTIC)
     Route: 001
     Dates: start: 20050915
  2. GENTADEXA(DEXAMYTREX) OPHTHALMIC SOLUTION EAR DROPS, SOLUTION, EAR DRO [Suspect]
     Indication: OTITIS MEDIA
     Dosage: AURICULAR (OTIC)
     Route: 001
     Dates: start: 20050905, end: 20050915
  3. GENTADEXA(DEXAMYTREX) OPHTHALMIC SOLUTION EAR DROPS, SOLUTION, EAR DRO [Suspect]
     Indication: OTITIS MEDIA
     Dosage: AURICULAR (OTIC)
     Route: 001
     Dates: start: 20050922
  4. GENTADEXA(DEXAMYTREX) OPHTHALMIC SOLUTION EAR DROPS, SOLUTION, EAR DRO [Suspect]
     Indication: OTITIS MEDIA
     Dosage: AURICULAR (OTIC)
     Route: 001
     Dates: start: 20051006

REACTIONS (10)
  - AURAL POLYP [None]
  - DEAFNESS [None]
  - EAR INFECTION [None]
  - EAR PAIN [None]
  - HYPOACUSIS [None]
  - LABYRINTHINE FISTULA [None]
  - PAIN [None]
  - TINNITUS [None]
  - TYMPANIC MEMBRANE PERFORATION [None]
  - VERTIGO [None]
